FAERS Safety Report 19333357 (Version 1)
Quarter: 2021Q2

REPORT INFORMATION
  Report Type: Spontaneous
  Country: US (occurrence: US)
  Receive Date: 20210529
  Receipt Date: 20210529
  Transmission Date: 20210717
  Serious: Yes (Other)
  Sender: FDA-Public Use
  Company Number: US-PURDUE-USA-2020-0229494

PATIENT
  Sex: Female

DRUGS (77)
  1. OXYCONTIN [Suspect]
     Active Substance: OXYCODONE HYDROCHLORIDE
     Indication: PRODUCT USED FOR UNKNOWN INDICATION
     Dosage: UNK
     Route: 048
  2. MS CONTIN [Suspect]
     Active Substance: MORPHINE SULFATE
     Dosage: 1 DF, Q12H (30 MG)
     Route: 048
     Dates: start: 20151205, end: 20160103
  3. MS CONTIN [Suspect]
     Active Substance: MORPHINE SULFATE
     Dosage: 1 DF, Q12H (30 MG)
     Route: 048
     Dates: start: 20161031, end: 20161130
  4. MS CONTIN [Suspect]
     Active Substance: MORPHINE SULFATE
     Dosage: 1 DF, Q12H (30 MG)
     Route: 048
     Dates: start: 20180920, end: 20181119
  5. HYDROCODONE BITARTRATE AND ACETAMINOPHEN [Suspect]
     Active Substance: ACETAMINOPHEN\HYDROCODONE BITARTRATE
     Dosage: TAKE 1/2?1 TAB, Q6H PRN
     Route: 048
     Dates: start: 20150215, end: 20150316
  6. HYDROCODONE BITARTRATE AND ACETAMINOPHEN [Suspect]
     Active Substance: ACETAMINOPHEN\HYDROCODONE BITARTRATE
     Dosage: TAKE 1/2?1 TAB, Q6H PRN
     Route: 048
     Dates: start: 20170826, end: 20170925
  7. HYDROCODONE BITARTRATE AND ACETAMINOPHEN [Suspect]
     Active Substance: ACETAMINOPHEN\HYDROCODONE BITARTRATE
     Dosage: TAKE 1/2?1 TAB, Q6H PRN
     Route: 048
     Dates: start: 20170925, end: 20171025
  8. HYDROCODONE BITARTRATE AND ACETAMINOPHEN [Suspect]
     Active Substance: ACETAMINOPHEN\HYDROCODONE BITARTRATE
     Dosage: TAKE 1/2?1 TAB, Q6H PRN
     Route: 048
     Dates: start: 20180622, end: 20180722
  9. HYDROCODONE BITARTRATE AND ACETAMINOPHEN [Suspect]
     Active Substance: ACETAMINOPHEN\HYDROCODONE BITARTRATE
     Dosage: TAKE 1/2?1 TAB, Q6H PRN
     Route: 048
     Dates: start: 20180920, end: 20181119
  10. OXYCODONE HCL CR TABLETS (SIMILAR TO NDA 22?272) [Suspect]
     Active Substance: OXYCODONE HYDROCHLORIDE
     Indication: PRODUCT USED FOR UNKNOWN INDICATION
     Dosage: UNK
     Route: 048
  11. OXYCODONE HCL TABLETS (RHODES 91?490) [Suspect]
     Active Substance: OXYCODONE HYDROCHLORIDE
     Indication: PRODUCT USED FOR UNKNOWN INDICATION
     Dosage: UNK
     Route: 048
  12. MS CONTIN [Suspect]
     Active Substance: MORPHINE SULFATE
     Dosage: 1 DF, Q12H (30 MG)
     Route: 048
     Dates: start: 20150512, end: 20150610
  13. MS CONTIN [Suspect]
     Active Substance: MORPHINE SULFATE
     Dosage: 1 DF, Q12H (30 MG)
     Route: 048
     Dates: start: 20171124, end: 20171224
  14. MS CONTIN [Suspect]
     Active Substance: MORPHINE SULFATE
     Dosage: 1 DF, Q12H (30 MG)
     Route: 048
     Dates: start: 20171224, end: 20180123
  15. MS CONTIN [Suspect]
     Active Substance: MORPHINE SULFATE
     Dosage: 1 DF, Q12H (30 MG)
     Route: 048
     Dates: start: 20180523, end: 20180622
  16. MS CONTIN [Suspect]
     Active Substance: MORPHINE SULFATE
     Dosage: 1 DF, Q12H (30 MG)
     Route: 048
     Dates: start: 20181119, end: 20181219
  17. HYDROCODONE BITARTRATE AND ACETAMINOPHEN [Suspect]
     Active Substance: ACETAMINOPHEN\HYDROCODONE BITARTRATE
     Dosage: TAKE 1/2?1 TAB,  Q4? 6H PRN
     Route: 048
     Dates: start: 20150513, end: 20150611
  18. HYDROCODONE BITARTRATE AND ACETAMINOPHEN [Suspect]
     Active Substance: ACETAMINOPHEN\HYDROCODONE BITARTRATE
     Dosage: TAKE 1/2?1 TAB, Q6H PRN
     Route: 048
     Dates: start: 20170529, end: 20170628
  19. HYDROCODONE BITARTRATE AND ACETAMINOPHEN [Suspect]
     Active Substance: ACETAMINOPHEN\HYDROCODONE BITARTRATE
     Dosage: TAKE 1/2?1 TAB, Q6H PRN
     Route: 048
     Dates: start: 20181119, end: 20181219
  20. MORPHINE SULFATE EXTENDED?RELEASE TABLETS (RHODES 74?769, 74?862) [Suspect]
     Active Substance: MORPHINE SULFATE
     Indication: PRODUCT USED FOR UNKNOWN INDICATION
     Dosage: UNK
     Route: 048
  21. OXYCODONE/ ACETAMINOPHEN TABLETS [Suspect]
     Active Substance: ACETAMINOPHEN\OXYCODONE HYDROCHLORIDE
     Indication: PRODUCT USED FOR UNKNOWN INDICATION
     Dosage: UNK
     Route: 048
  22. MS CONTIN [Suspect]
     Active Substance: MORPHINE SULFATE
     Dosage: 1 DF, Q12H (30 MG)
     Route: 048
     Dates: start: 20150413, end: 20150512
  23. MS CONTIN [Suspect]
     Active Substance: MORPHINE SULFATE
     Dosage: 1 DF, Q12H (30 MG)
     Route: 048
     Dates: start: 20161001, end: 20161031
  24. MS CONTIN [Suspect]
     Active Substance: MORPHINE SULFATE
     Dosage: 1 DF, Q12H (30 MG)
     Route: 048
     Dates: start: 20170129, end: 20170228
  25. HYDROCODONE BITARTRATE AND ACETAMINOPHEN [Suspect]
     Active Substance: ACETAMINOPHEN\HYDROCODONE BITARTRATE
     Dosage: TAKE 1/2?1 TAB, Q6H PRN
     Route: 048
     Dates: start: 20151205, end: 20160103
  26. HYDROCODONE BITARTRATE AND ACETAMINOPHEN [Suspect]
     Active Substance: ACETAMINOPHEN\HYDROCODONE BITARTRATE
     Dosage: TAKE 1/2?1 TAB, Q6H PRN
     Route: 048
     Dates: start: 20161130, end: 20161230
  27. HYDROCODONE BITARTRATE AND ACETAMINOPHEN [Suspect]
     Active Substance: ACETAMINOPHEN\HYDROCODONE BITARTRATE
     Dosage: TAKE 1/2?1 TAB, Q6H PRN
     Route: 048
     Dates: start: 20161230, end: 20170129
  28. HYDROCODONE BITARTRATE AND ACETAMINOPHEN [Suspect]
     Active Substance: ACETAMINOPHEN\HYDROCODONE BITARTRATE
     Dosage: TAKE 1/2?1 TAB, Q6H PRN
     Route: 048
     Dates: start: 20170129, end: 20170228
  29. MS CONTIN [Suspect]
     Active Substance: MORPHINE SULFATE
     Indication: PAIN
     Dosage: 1 DF, BID (60 MG)
     Route: 048
     Dates: start: 20150114, end: 20150212
  30. MS CONTIN [Suspect]
     Active Substance: MORPHINE SULFATE
     Dosage: 1 DF, Q12H (30 MG)
     Route: 048
     Dates: start: 20150810, end: 20150908
  31. MS CONTIN [Suspect]
     Active Substance: MORPHINE SULFATE
     Dosage: 1 DF, Q12H (30 MG)
     Route: 048
     Dates: start: 20151102, end: 20151201
  32. MS CONTIN [Suspect]
     Active Substance: MORPHINE SULFATE
     Dosage: 1 DF, Q12H (30 MG)
     Route: 048
     Dates: start: 20161230, end: 20170129
  33. MS CONTIN [Suspect]
     Active Substance: MORPHINE SULFATE
     Dosage: 1 DF, Q12H (30 MG)
     Route: 048
     Dates: start: 20170228, end: 20170330
  34. MS CONTIN [Suspect]
     Active Substance: MORPHINE SULFATE
     Dosage: 1 DF, Q12H (30 MG)
     Route: 048
     Dates: start: 20170429, end: 20170529
  35. MS CONTIN [Suspect]
     Active Substance: MORPHINE SULFATE
     Dosage: 1 DF, Q12H (30 MG)
     Route: 048
     Dates: start: 20170628, end: 20170728
  36. MS CONTIN [Suspect]
     Active Substance: MORPHINE SULFATE
     Dosage: 1 DF, Q12H (30 MG)
     Route: 048
     Dates: start: 20180324, end: 20180423
  37. MS CONTIN [Suspect]
     Active Substance: MORPHINE SULFATE
     Dosage: 1 DF, Q12H (30 MG)
     Route: 048
     Dates: start: 20190118, end: 20190216
  38. HYDROCODONE BITARTRATE AND ACETAMINOPHEN [Suspect]
     Active Substance: ACETAMINOPHEN\HYDROCODONE BITARTRATE
     Dosage: TAKE 1/2?1 TAB, Q6H PRN
     Route: 048
     Dates: start: 20151106, end: 20151205
  39. HYDROCODONE BITARTRATE AND ACETAMINOPHEN [Suspect]
     Active Substance: ACETAMINOPHEN\HYDROCODONE BITARTRATE
     Dosage: TAKE 1/2?1 TAB, Q6H PRN
     Route: 048
     Dates: start: 20161031, end: 20161130
  40. HYDROCODONE BITARTRATE AND ACETAMINOPHEN [Suspect]
     Active Substance: ACETAMINOPHEN\HYDROCODONE BITARTRATE
     Dosage: TAKE 1/2?1 TAB, Q6H PRN
     Route: 048
     Dates: start: 20170727, end: 20170826
  41. HYDROCODONE BITARTRATE AND ACETAMINOPHEN [Suspect]
     Active Substance: ACETAMINOPHEN\HYDROCODONE BITARTRATE
     Dosage: TAKE 1/2?1 TAB, Q6H PRN
     Route: 048
     Dates: start: 20180423, end: 20180523
  42. MS CONTIN [Suspect]
     Active Substance: MORPHINE SULFATE
     Dosage: 1 DF, Q12H (30 MG)
     Route: 048
     Dates: start: 20151106, end: 20151205
  43. MS CONTIN [Suspect]
     Active Substance: MORPHINE SULFATE
     Dosage: 1 DF, Q12H (30 MG)
     Route: 048
     Dates: start: 20170529, end: 20170628
  44. MS CONTIN [Suspect]
     Active Substance: MORPHINE SULFATE
     Dosage: 1 DF, Q12H (30 MG)
     Route: 048
     Dates: start: 20180821, end: 20180920
  45. HYDROCODONE BITARTRATE AND ACETAMINOPHEN [Suspect]
     Active Substance: ACETAMINOPHEN\HYDROCODONE BITARTRATE
     Dosage: TAKE 1/2?1 TAB, Q6H PRN
     Route: 048
     Dates: start: 20150907, end: 20151006
  46. HYDROCODONE BITARTRATE AND ACETAMINOPHEN [Suspect]
     Active Substance: ACETAMINOPHEN\HYDROCODONE BITARTRATE
     Dosage: TAKE 1/2?1 TAB, Q6H PRN
     Route: 048
     Dates: start: 20170228, end: 20170330
  47. HYDROCODONE BITARTRATE AND ACETAMINOPHEN [Suspect]
     Active Substance: ACETAMINOPHEN\HYDROCODONE BITARTRATE
     Dosage: TAKE 1/2?1 TAB, Q6H PRN
     Route: 048
     Dates: start: 20171025, end: 20171124
  48. TRAMADOL HYDROCHLORIDE. [Suspect]
     Active Substance: TRAMADOL HYDROCHLORIDE
     Indication: PRODUCT USED FOR UNKNOWN INDICATION
     Dosage: UNK
     Route: 048
  49. MS CONTIN [Suspect]
     Active Substance: MORPHINE SULFATE
     Dosage: 1 DF, Q12H (30 MG)
     Route: 048
     Dates: start: 20170330, end: 20170429
  50. MS CONTIN [Suspect]
     Active Substance: MORPHINE SULFATE
     Dosage: 1 DF, Q12H (30 MG)
     Route: 048
     Dates: start: 20170925, end: 20171025
  51. MS CONTIN [Suspect]
     Active Substance: MORPHINE SULFATE
     Dosage: 1 DF, Q12H (30 MG)
     Route: 048
     Dates: start: 20171025, end: 20171124
  52. MS CONTIN [Suspect]
     Active Substance: MORPHINE SULFATE
     Dosage: 1 DF, Q12H (30 MG)
     Route: 048
     Dates: start: 20180622, end: 20180722
  53. MS CONTIN [Suspect]
     Active Substance: MORPHINE SULFATE
     Dosage: 1 DF, Q12H (30 MG)
     Route: 048
     Dates: start: 20190216, end: 20190317
  54. MS CONTIN [Suspect]
     Active Substance: MORPHINE SULFATE
     Dosage: 1 DF, Q12H (30 MG)
     Route: 048
     Dates: start: 20190317, end: 20190415
  55. BUPRENORPHINE TRANSDERMAL PATCH (SIMILAR TO NDA 21?306) [Suspect]
     Active Substance: BUPRENORPHINE
     Indication: PRODUCT USED FOR UNKNOWN INDICATION
     Dosage: UNK
     Route: 062
  56. HYDROCODONE BITARTRATE AND ACETAMINOPHEN [Suspect]
     Active Substance: ACETAMINOPHEN\HYDROCODONE BITARTRATE
     Dosage: TAKE 1/2?1 TAB, Q6H PRN
     Route: 048
     Dates: start: 20160504, end: 20160603
  57. HYDROCODONE BITARTRATE AND ACETAMINOPHEN [Suspect]
     Active Substance: ACETAMINOPHEN\HYDROCODONE BITARTRATE
     Dosage: TAKE 1/2?1 TAB, Q6H PRN
     Route: 048
     Dates: start: 20161001, end: 20161031
  58. HYDROCODONE BITARTRATE AND ACETAMINOPHEN [Suspect]
     Active Substance: ACETAMINOPHEN\HYDROCODONE BITARTRATE
     Dosage: TAKE 1/2?1 TAB, Q6H PRN
     Route: 048
     Dates: start: 20170628, end: 20170728
  59. HYDROCODONE BITARTRATE AND ACETAMINOPHEN [Suspect]
     Active Substance: ACETAMINOPHEN\HYDROCODONE BITARTRATE
     Dosage: TAKE 1/2?1 TAB, Q6H PRN
     Route: 048
     Dates: start: 20180722, end: 20180821
  60. HYDROCODONE BITARTRATE AND ACETAMINOPHEN [Suspect]
     Active Substance: ACETAMINOPHEN\HYDROCODONE BITARTRATE
     Dosage: TAKE 1/2?1 TAB, Q6H PRN
     Route: 048
     Dates: start: 20180821, end: 20180920
  61. MS CONTIN [Suspect]
     Active Substance: MORPHINE SULFATE
     Dosage: 1 DF, Q12H (30 MG)
     Route: 048
     Dates: start: 20150908, end: 20151007
  62. MS CONTIN [Suspect]
     Active Substance: MORPHINE SULFATE
     Dosage: 1 DF, Q12H (30 MG)
     Route: 048
     Dates: start: 20161130, end: 20161230
  63. MS CONTIN [Suspect]
     Active Substance: MORPHINE SULFATE
     Dosage: 1 DF, Q12H (30 MG)
     Route: 048
     Dates: start: 20180423, end: 20180523
  64. MS CONTIN [Suspect]
     Active Substance: MORPHINE SULFATE
     Dosage: 1 DF, Q12H (30 MG)
     Route: 048
     Dates: start: 20180722, end: 20180821
  65. HYDROCODONE BITARTRATE AND ACETAMINOPHEN [Suspect]
     Active Substance: ACETAMINOPHEN\HYDROCODONE BITARTRATE
     Dosage: TAKE 1/2?1 TAB,  Q4? 6H PRN
     Route: 048
     Dates: start: 20150414, end: 20150513
  66. HYDROCODONE BITARTRATE AND ACETAMINOPHEN [Suspect]
     Active Substance: ACETAMINOPHEN\HYDROCODONE BITARTRATE
     Dosage: TAKE 1/2?1 TAB, Q6H PRN
     Route: 048
     Dates: start: 20171124, end: 20171224
  67. HYDROCODONE BITARTRATE AND ACETAMINOPHEN [Suspect]
     Active Substance: ACETAMINOPHEN\HYDROCODONE BITARTRATE
     Dosage: TAKE 1/2?1 TAB, Q6H PRN
     Route: 048
     Dates: start: 20180523, end: 20180622
  68. MS CONTIN [Suspect]
     Active Substance: MORPHINE SULFATE
     Dosage: 1 DF, BID (60 MG)
     Route: 048
     Dates: start: 20150212, end: 20150313
  69. MS CONTIN [Suspect]
     Active Substance: MORPHINE SULFATE
     Dosage: 1 DF, Q12H (30 MG)
     Route: 048
     Dates: start: 20160504, end: 20160603
  70. MS CONTIN [Suspect]
     Active Substance: MORPHINE SULFATE
     Dosage: 1 DF, Q12H (30 MG)
     Route: 048
     Dates: start: 20170727, end: 20170826
  71. MS CONTIN [Suspect]
     Active Substance: MORPHINE SULFATE
     Dosage: 1 DF, Q12H (30 MG)
     Route: 048
     Dates: start: 20170826, end: 20170925
  72. MS CONTIN [Suspect]
     Active Substance: MORPHINE SULFATE
     Dosage: 1 DF, Q12H (30 MG)
     Route: 048
     Dates: start: 20181219, end: 20190118
  73. HYDROCODONE BITARTRATE AND ACETAMINOPHEN [Suspect]
     Active Substance: ACETAMINOPHEN\HYDROCODONE BITARTRATE
     Indication: PAIN
     Dosage: TAKE 1/2?1 TAB, Q6H PRN
     Route: 048
     Dates: start: 20150117, end: 20150215
  74. HYDROCODONE BITARTRATE AND ACETAMINOPHEN [Suspect]
     Active Substance: ACETAMINOPHEN\HYDROCODONE BITARTRATE
     Dosage: TAKE 1/2?1 TAB, Q6H PRN
     Route: 048
     Dates: start: 20150809, end: 20150907
  75. HYDROCODONE BITARTRATE AND ACETAMINOPHEN [Suspect]
     Active Substance: ACETAMINOPHEN\HYDROCODONE BITARTRATE
     Dosage: TAKE 1/2?1 TAB, Q6H PRN
     Route: 048
     Dates: start: 20170330, end: 20170429
  76. HYDROCODONE BITARTRATE AND ACETAMINOPHEN [Suspect]
     Active Substance: ACETAMINOPHEN\HYDROCODONE BITARTRATE
     Dosage: TAKE 1/2?1 TAB, Q6H PRN
     Route: 048
     Dates: start: 20170429, end: 20170529
  77. HYDROCODONE BITARTRATE AND ACETAMINOPHEN [Suspect]
     Active Substance: ACETAMINOPHEN\HYDROCODONE BITARTRATE
     Dosage: TAKE 1/2?1 TAB, Q6H PRN
     Route: 048
     Dates: start: 20180324, end: 20180423

REACTIONS (6)
  - Gingival disorder [Unknown]
  - Drug dependence [Unknown]
  - Dry mouth [Unknown]
  - Tooth disorder [Unknown]
  - Tooth injury [Unknown]
  - Anger [Unknown]
